FAERS Safety Report 6034414-3 (Version None)
Quarter: 2009Q1

REPORT INFORMATION
  Report Type: 
  Country: None (occurrence: None)
  Receive Date: 20090112
  Receipt Date: 20090107
  Transmission Date: 20090719
  Serious: Yes (Other)
  Sender: FDA-Public Use
  Company Number: A0762895A

PATIENT
  Age: 26 Year
  Sex: Female
  Weight: 61.4 kg

DRUGS (13)
  1. BUPROPION HCL [Suspect]
     Indication: DEPRESSION
     Dosage: 150MG PER DAY
     Route: 048
     Dates: start: 20080110
  2. HUMIRA [Suspect]
     Indication: ANKYLOSING SPONDYLITIS
     Route: 058
     Dates: start: 20080401
  3. VICODIN [Suspect]
     Indication: PAIN
     Dosage: 3TAB PER DAY
     Route: 048
  4. LEXAPRO [Suspect]
     Indication: DEPRESSION
     Dosage: 20MG PER DAY
     Route: 048
     Dates: start: 20071023
  5. CHLORMEZANONE [Suspect]
     Indication: DRUG USE FOR UNKNOWN INDICATION
  6. AMITRIPTYLINE HCL [Suspect]
     Indication: MIGRAINE PROPHYLAXIS
     Dosage: 75MG AT NIGHT
     Route: 048
     Dates: start: 20070501
  7. RIZATRIPTAN BENZOATE [Suspect]
     Indication: HEADACHE
     Dosage: 10MG PER DAY
     Route: 048
     Dates: start: 20070501
  8. PREGABALIN [Suspect]
     Indication: DRUG USE FOR UNKNOWN INDICATION
     Dosage: 50MG TWICE PER DAY
     Route: 048
     Dates: start: 20070601
  9. CELECOXIB [Suspect]
     Indication: ANKYLOSING SPONDYLITIS
     Dosage: 200MG PER DAY
     Route: 048
     Dates: start: 20070601
  10. CYCLOBENZAPRINE HCL [Suspect]
     Dosage: 10MG THREE TIMES PER DAY
     Route: 048
     Dates: start: 20070101
  11. UNSPECIFIED MEDICATION [Suspect]
     Indication: ACNE
     Dosage: 100MG TWICE PER DAY
     Route: 048
     Dates: start: 20080313
  12. CLINDAMYCIN HCL [Suspect]
     Dosage: 100MG THREE TIMES PER DAY
     Route: 048
  13. TETANUS SHOT [Suspect]
     Route: 030
     Dates: start: 20080701

REACTIONS (12)
  - AMNESIA [None]
  - ASTHENIA [None]
  - CONFUSIONAL STATE [None]
  - DIZZINESS [None]
  - DRUG INTERACTION [None]
  - FEELING ABNORMAL [None]
  - LIMB INJURY [None]
  - LOCALISED INFECTION [None]
  - LOSS OF CONSCIOUSNESS [None]
  - PAIN IN EXTREMITY [None]
  - TREMOR [None]
  - WITHDRAWAL SYNDROME [None]
